FAERS Safety Report 4733586-8 (Version None)
Quarter: 2005Q3

REPORT INFORMATION
  Report Type: 
  Country: None (occurrence: None)
  Receive Date: 20050725
  Receipt Date: 20050411
  Transmission Date: 20060218
  Serious: No
  Sender: FDA-Public Use
  Company Number: COT_0055_2005

PATIENT
  Age: 62 Year
  Sex: Male
  Weight: 77.1115 kg

DRUGS (16)
  1. VENTAVIS [Suspect]
     Indication: CHRONIC OBSTRUCTIVE PULMONARY DISEASE
     Dosage: SEE IMAGE
     Route: 055
     Dates: start: 20050401, end: 20050405
  2. VENTAVIS [Suspect]
     Indication: PULMONARY HYPERTENSION
     Dosage: SEE IMAGE
     Route: 055
     Dates: start: 20050401, end: 20050405
  3. VENTAVIS [Suspect]
     Indication: CHRONIC OBSTRUCTIVE PULMONARY DISEASE
     Dosage: SEE IMAGE
     Route: 055
     Dates: start: 20050406
  4. VENTAVIS [Suspect]
     Indication: PULMONARY HYPERTENSION
     Dosage: SEE IMAGE
     Route: 055
     Dates: start: 20050406
  5. NORVASC [Concomitant]
  6. PREDNISONE [Concomitant]
  7. DIGOXIN [Concomitant]
  8. SYNTHROID [Concomitant]
  9. VIAGRA [Concomitant]
  10. LIPITOR [Concomitant]
  11. TRACLEER [Concomitant]
  12. ADVAIR DISKUS 100/50 [Concomitant]
  13. DUONEB [Concomitant]
  14. MUCINEX [Concomitant]
  15. PROZAC [Concomitant]
  16. TRIAMTERENE [Concomitant]

REACTIONS (5)
  - BLOOD PRESSURE DECREASED [None]
  - CHEST DISCOMFORT [None]
  - DIZZINESS [None]
  - DYSPNOEA [None]
  - HAEMOPTYSIS [None]
